FAERS Safety Report 15723163 (Version 1)
Quarter: 2018Q4

REPORT INFORMATION
  Report Type: Spontaneous
  Country: US (occurrence: US)
  Receive Date: 20181214
  Receipt Date: 20181214
  Transmission Date: 20190205
  Serious: Yes (Other)
  Sender: FDA-Public Use
  Company Number: US-PFIZER INC-2018505933

PATIENT
  Age: 76 Year
  Sex: Female
  Weight: 48 kg

DRUGS (4)
  1. LEVOTHYROXINE. [Concomitant]
     Active Substance: LEVOTHYROXINE
     Indication: THYROID DISORDER
     Dosage: 1 DF, 1X/DAY (1 LITTLE PILL BY MOUTH DAILY 90 MINUTES BEFORE BREAKFAST )
     Route: 048
  2. ARANESP [Concomitant]
     Active Substance: DARBEPOETIN ALFA
     Dosage: UNK (EVERY 6 WEEKS)
  3. ARANESP [Concomitant]
     Active Substance: DARBEPOETIN ALFA
     Dosage: UNK, MONTHLY
  4. XELJANZ XR [Suspect]
     Active Substance: TOFACITINIB CITRATE
     Indication: RHEUMATOID ARTHRITIS
     Dosage: 11 MG, DAILY
     Route: 048
     Dates: start: 2016

REACTIONS (2)
  - Fall [Unknown]
  - Upper limb fracture [Unknown]

NARRATIVE: CASE EVENT DATE: 201810
